FAERS Safety Report 26044710 (Version 3)
Quarter: 2025Q4

REPORT INFORMATION
  Report Type: Report from Study
  Country: CA (occurrence: CA)
  Receive Date: 20251114
  Receipt Date: 20251218
  Transmission Date: 20260119
  Serious: Yes (Hospitalization)
  Sender: JAZZ
  Company Number: CA-JAZZ PHARMACEUTICALS-2025-CA-014934

PATIENT
  Age: 40 Year
  Sex: Male
  Weight: 85.275 kg

DRUGS (20)
  1. EPIDIOLEX [Suspect]
     Active Substance: CANNABIDIOL
     Indication: Product used for unknown indication
     Dosage: 4 MILLILITER, BID
     Dates: start: 202504
  2. EPIDIOLEX [Suspect]
     Active Substance: CANNABIDIOL
     Dosage: 10 MILLIGRAM/KILOGRAM/DAY
  3. EPIDIOLEX [Suspect]
     Active Substance: CANNABIDIOL
     Dosage: 800 MILLIGRAM/KILOGRAM/DAY
  4. EPIDIOLEX [Suspect]
     Active Substance: CANNABIDIOL
     Dosage: 5 MILLILITER, BID
  5. EPIDIOLEX [Suspect]
     Active Substance: CANNABIDIOL
     Dosage: 6 MILLILITER, BID
  6. EPIDIOLEX [Suspect]
     Active Substance: CANNABIDIOL
     Dosage: 5 MILLILITER QAM AND 6 MILLILITER QHS
  7. EPIDIOLEX [Suspect]
     Active Substance: CANNABIDIOL
     Dosage: 4 MILLILITER QAM AND 5 MILLILITER QHS
  8. CLOBAZAM [Suspect]
     Active Substance: CLOBAZAM
     Indication: Product used for unknown indication
     Dosage: WEEK 1:10MG PO QAM AND 20MG QHS
  9. CLOBAZAM [Suspect]
     Active Substance: CLOBAZAM
     Dosage: WEEK 2:  5MG QAM AND 20MG QHS
  10. CLOBAZAM [Suspect]
     Active Substance: CLOBAZAM
     Dosage: WEEK 3: 20MG PO QHS
  11. CLOBAZAM [Suspect]
     Active Substance: CLOBAZAM
     Dosage: 20 MILLIGRAM, BID
  12. LORAZEPAM [Concomitant]
     Active Substance: LORAZEPAM
     Indication: Product used for unknown indication
  13. CALCIUM CARBONATE [Concomitant]
     Active Substance: CALCIUM CARBONATE
     Indication: Product used for unknown indication
     Dosage: UNK, BID
  14. VITAMIN D3 [Concomitant]
     Active Substance: CHOLECALCIFEROL
     Indication: Product used for unknown indication
     Dosage: UNK, BID
  15. DIVALPROEX SODIUM [Concomitant]
     Active Substance: DIVALPROEX SODIUM
     Indication: Product used for unknown indication
     Dosage: 1 TABLET SWALLOW, BID
  16. RUFINAMIDE [Concomitant]
     Active Substance: RUFINAMIDE
     Indication: Product used for unknown indication
     Dosage: 800 MILLIGRAM, BID
  17. TOPIRAMATE [Concomitant]
     Active Substance: TOPIRAMATE
     Indication: Product used for unknown indication
     Dosage: 200 MILLIGRAM, BID
  18. LAMOTRIGINE [Concomitant]
     Active Substance: LAMOTRIGINE
     Indication: Product used for unknown indication
     Dosage: 100MG PO QAM AND 100MG QHS
  19. BRIVARACETAM [Concomitant]
     Active Substance: BRIVARACETAM
     Indication: Product used for unknown indication
     Dosage: 100 MILLIGRAM, BID
  20. LEVOCARNITINE [Concomitant]
     Active Substance: LEVOCARNITINE
     Indication: Product used for unknown indication
     Dosage: 1 TABLET SWALLOW,, TID

REACTIONS (6)
  - Hospitalisation [Unknown]
  - Hypertransaminasaemia [Recovered/Resolved]
  - Peripheral swelling [Unknown]
  - Somnolence [Unknown]
  - Hepatic enzyme increased [Unknown]
  - Skin discolouration [Unknown]

NARRATIVE: CASE EVENT DATE: 20250623
